FAERS Safety Report 9471383 (Version 1)
Quarter: 2013Q3

REPORT INFORMATION
  Report Type: Spontaneous
  Country: GB (occurrence: GB)
  Receive Date: 20130822
  Receipt Date: 20130822
  Transmission Date: 20140515
  Serious: Yes (Life-Threatening, Hospitalization)
  Sender: FDA-Public Use
  Company Number: GB-TEVA-425978ISR

PATIENT
  Age: 63 Year
  Sex: Male

DRUGS (10)
  1. SERTRALINE [Suspect]
     Dates: start: 20130606
  2. CARBAMAZEPINE [Suspect]
     Dosage: LONG TERM
  3. CLEXANE [Concomitant]
     Dosage: 40MG/0.4ML
  4. ASCORBIC ACID [Concomitant]
  5. CITRIC ACID SOLUTION [Concomitant]
  6. LANSOPRAZOLE [Concomitant]
  7. SALBUTAMOL [Concomitant]
     Dosage: 5MG/2.5ML
  8. FLUTICASONE PROPIONATE [Concomitant]
     Route: 045
  9. DIAZEPAM [Concomitant]
  10. HYOSCINE [Concomitant]
     Dosage: 1MG/72HOURS TRANSDERMAL PATCHES
     Route: 062

REACTIONS (1)
  - Neutropenia [Recovering/Resolving]
